FAERS Safety Report 11213570 (Version 1)
Quarter: 2015Q2

REPORT INFORMATION
  Report Type: Spontaneous
  Country: US (occurrence: US)
  Receive Date: 20150623
  Receipt Date: 20150623
  Transmission Date: 20150821
  Serious: Yes (Death, Hospitalization)
  Sender: FDA-Public Use
  Company Number: US-UNITED THERAPEUTICS-UNT-2015-006190

PATIENT
  Age: 61 Year
  Sex: Female
  Weight: 55.33 kg

DRUGS (3)
  1. TRACLEER [Concomitant]
     Active Substance: BOSENTAN\BOSENTAN MONOHYDRATE
     Indication: PRODUCT USED FOR UNKNOWN INDICATION
  2. TYVASO [Suspect]
     Active Substance: TREPROSTINIL
     Indication: PULMONARY ARTERIAL HYPERTENSION
     Dosage: 18-54 ?G, CONTINUING
     Dates: start: 20140923
  3. TYVASO [Suspect]
     Active Substance: TREPROSTINIL
     Dosage: 18-54 ?G, CONTINUING

REACTIONS (3)
  - Oedema [Unknown]
  - Death [Fatal]
  - Atrial fibrillation [Unknown]

NARRATIVE: CASE EVENT DATE: 201505
